FAERS Safety Report 18845129 (Version 1)
Quarter: 2021Q1

REPORT INFORMATION
  Report Type: Spontaneous
  Country: US (occurrence: US)
  Receive Date: 20210204
  Receipt Date: 20210204
  Transmission Date: 20210419
  Serious: No
  Sender: FDA-Public Use
  Company Number: US-009507513-2102USA000349

PATIENT
  Age: 47 Year
  Sex: Female

DRUGS (2)
  1. JANUMET [Suspect]
     Active Substance: METFORMIN HYDROCHLORIDE\SITAGLIPTIN PHOSPHATE
     Indication: TYPE 2 DIABETES MELLITUS
     Dosage: 1 DF:100/1000MG TABLET ONCE PER DAY
     Route: 048
     Dates: end: 20201215
  2. INSULIN [Concomitant]
     Active Substance: INSULIN NOS

REACTIONS (2)
  - Blood glucose increased [Not Recovered/Not Resolved]
  - Product dose omission issue [Unknown]

NARRATIVE: CASE EVENT DATE: 20201215
